FAERS Safety Report 12761423 (Version 1)
Quarter: 2016Q3

REPORT INFORMATION
  Report Type: Spontaneous
  Country: GB (occurrence: GB)
  Receive Date: 20160920
  Receipt Date: 20160920
  Transmission Date: 20161109
  Serious: Yes (Hospitalization, Other)
  Sender: FDA-Public Use
  Company Number: GB-APOTEX-2016AP011439

PATIENT
  Age: 44 Year
  Sex: Male

DRUGS (11)
  1. PREGABALIN. [Concomitant]
     Active Substance: PREGABALIN
     Indication: PRODUCT USED FOR UNKNOWN INDICATION
     Dosage: 300 MG, BID
     Route: 065
  2. QUETIAPINE FILM-COATED TABLETS [Suspect]
     Active Substance: QUETIAPINE
     Indication: MENTAL DISORDER
     Dosage: 50 MG, BID
     Route: 065
  3. CLOMETHIAZOLE [Concomitant]
     Active Substance: CLOMETHIAZOLE
     Indication: PRODUCT USED FOR UNKNOWN INDICATION
     Dosage: 384 MG, QD
     Route: 065
  4. QUETIAPINE FILM-COATED TABLETS [Interacting]
     Active Substance: QUETIAPINE
     Dosage: 125 MG IN THE MORNING AND 150 IN THE EVENING
     Route: 065
  5. QUETIAPINE FILM-COATED TABLETS [Interacting]
     Active Substance: QUETIAPINE
     Dosage: 150 MG, BID
     Route: 065
  6. VENAXX XL PROLONGED-RELEASE CAPSULES [Interacting]
     Active Substance: VENLAFAXINE HYDROCHLORIDE
     Dosage: 300 MG, QD
     Route: 065
  7. ZOMORPH [Concomitant]
     Active Substance: MORPHINE SULFATE
     Indication: PRODUCT USED FOR UNKNOWN INDICATION
     Dosage: 20 MG, BID
     Route: 065
  8. DIAZEPAM. [Concomitant]
     Active Substance: DIAZEPAM
     Indication: PRODUCT USED FOR UNKNOWN INDICATION
     Dosage: 2 MG, TID
     Route: 065
  9. QUETIAPINE FILM-COATED TABLETS [Interacting]
     Active Substance: QUETIAPINE
     Dosage: 100 MG, BID
     Route: 065
  10. QUETIAPINE FILM-COATED TABLETS [Interacting]
     Active Substance: QUETIAPINE
     Dosage: 125 MG, BID
     Route: 065
  11. VENAXX XL PROLONGED-RELEASE CAPSULES [Interacting]
     Active Substance: VENLAFAXINE HYDROCHLORIDE
     Indication: MENTAL DISORDER
     Dosage: INITIAL DOSAGE NOT STATED
     Route: 065

REACTIONS (3)
  - Systemic inflammatory response syndrome [Recovered/Resolved]
  - Serotonin syndrome [Recovered/Resolved]
  - Drug interaction [Recovered/Resolved]
